FAERS Safety Report 16869991 (Version 1)
Quarter: 2019Q3

REPORT INFORMATION
  Report Type: Spontaneous
  Country: US (occurrence: US)
  Receive Date: 20190930
  Receipt Date: 20190930
  Transmission Date: 20191005
  Serious: Yes (Other)
  Sender: FDA-Public Use
  Company Number: US-BAYER-2019-174170

PATIENT
  Age: 69 Year
  Sex: Male

DRUGS (2)
  1. SORAFENIB (RAF KINASE INHIBITOR) [Suspect]
     Active Substance: SORAFENIB
     Indication: HEPATOCELLULAR CARCINOMA
  2. LENVATINIB [Concomitant]
     Active Substance: LENVATINIB

REACTIONS (5)
  - Portal vein thrombosis [None]
  - Hepatotoxicity [None]
  - Asthenia [None]
  - Hepatocellular carcinoma [None]
  - Haematochezia [None]
